FAERS Safety Report 4335134-3 (Version None)
Quarter: 2004Q1

REPORT INFORMATION
  Report Type: 
  Country: None (occurrence: None)
  Receive Date: 20040329
  Receipt Date: 20040126
  Transmission Date: 20041129
  Serious: No
  Sender: FDA-Public Use
  Company Number: 04P-163-0248398-00

PATIENT
  Age: 71 Year
  Sex: Female

DRUGS (8)
  1. HUMIRA [Suspect]
     Indication: RHEUMATOID ARTHRITIS
     Dosage: 40 MG, 1 IN 2 WK, SUBCUTANEOUS
     Route: 058
     Dates: start: 20031008, end: 20031201
  2. HUMIRA [Suspect]
     Indication: RHEUMATOID ARTHRITIS
     Dosage: 40 MG, 1 IN 2 WK, SUBCUTANEOUS
     Route: 058
     Dates: start: 20040114
  3. CRESTOR [Concomitant]
  4. CARVEDILOL [Concomitant]
  5. ALENDRONATE SODIUM [Concomitant]
  6. CELECOXIB [Concomitant]
  7. PROPACET 100 [Concomitant]
  8. LANSOPRAZOLE [Concomitant]

REACTIONS (2)
  - PRURITUS [None]
  - RASH [None]
